FAERS Safety Report 20542990 (Version 1)
Quarter: 2022Q1

REPORT INFORMATION
  Report Type: Spontaneous
  Country: US (occurrence: US)
  Receive Date: 20220302
  Receipt Date: 20220302
  Transmission Date: 20220423
  Serious: Yes (Other)
  Sender: FDA-Public Use
  Company Number: US-PFIZER INC-202200322385

PATIENT
  Sex: Male

DRUGS (2)
  1. XELJANZ [Suspect]
     Active Substance: TOFACITINIB CITRATE
     Indication: Rheumatoid arthritis
     Dosage: UNK, 2X/DAY
  2. HERBALS\TURMERIC [Suspect]
     Active Substance: HERBALS\TURMERIC

REACTIONS (2)
  - Renal vasculitis [Unknown]
  - Antineutrophil cytoplasmic antibody [Unknown]
